FAERS Safety Report 8958203 (Version 1)
Quarter: 2012Q4

REPORT INFORMATION
  Report Type: 
  Country: US (occurrence: US)
  Receive Date: 20121211
  Receipt Date: 20121211
  Transmission Date: 20130627
  Serious: Yes (Hospitalization)
  Sender: FDA-Public Use
  Company Number: PHEH2012US024197

PATIENT
  Sex: Female

DRUGS (1)
  1. AFINITOR [Suspect]

REACTIONS (4)
  - Hyponatraemia [Unknown]
  - Dyspnoea [Unknown]
  - Gait disturbance [Unknown]
  - Oedema peripheral [Unknown]
